FAERS Safety Report 17143120 (Version 3)
Quarter: 2020Q2

REPORT INFORMATION
  Report Type: Spontaneous
  Country: DE (occurrence: DE)
  Receive Date: 20191212
  Receipt Date: 20200505
  Transmission Date: 20200713
  Serious: Yes (Hospitalization, Other)
  Sender: FDA-Public Use
  Company Number: DE-AMGEN-DEUSP2019204331

PATIENT
  Age: 10 Year
  Sex: Male
  Weight: 70 kg

DRUGS (1)
  1. XGEVA [Suspect]
     Active Substance: DENOSUMAB
     Indication: ANEURYSMAL BONE CYST
     Dosage: 120 MILLIGRAM, Q4WK
     Route: 058
     Dates: start: 201504, end: 201906

REACTIONS (8)
  - Rebound effect [Unknown]
  - Vascular calcification [Unknown]
  - Hypercalciuria [Unknown]
  - Nephrocalcinosis [Unknown]
  - Off label use [Unknown]
  - Bone loss [Unknown]
  - Epiphyseal fracture [Recovered/Resolved]
  - Hypercalcaemia [Not Recovered/Not Resolved]

NARRATIVE: CASE EVENT DATE: 201504
